FAERS Safety Report 5503491-8 (Version None)
Quarter: 2007Q4

REPORT INFORMATION
  Report Type: 
  Country: None (occurrence: None)
  Receive Date: 20071029
  Receipt Date: 20071016
  Transmission Date: 20080405
  Serious: Yes (Other)
  Sender: FDA-Public Use
  Company Number: B0492272A

PATIENT
  Age: 43 Year
  Sex: Male

DRUGS (2)
  1. AMOXICILLIN TRIHYDRATE + POTASSIUM CLAVULANATE (FORMULATION UNKNOWN (A [Suspect]
     Indication: RESPIRATORY TRACT INFECTION
  2. ACETAMINOPHEN [Suspect]
     Indication: RESPIRATORY TRACT INFECTION

REACTIONS (1)
  - ANGIOEDEMA [None]
